FAERS Safety Report 24707592 (Version 2)
Quarter: 2024Q4

REPORT INFORMATION
  Report Type: Spontaneous
  Country: US (occurrence: US)
  Receive Date: 20241206
  Receipt Date: 20241213
  Transmission Date: 20250115
  Serious: No
  Sender: PFIZER
  Company Number: US-PFIZER INC-PV202400157656

PATIENT
  Age: 81 Year
  Sex: Female
  Weight: 70.8 kg

DRUGS (9)
  1. IBRANCE [Suspect]
     Active Substance: PALBOCICLIB
     Indication: Breast cancer recurrent
     Dosage: DAILY FOR 21 DAYS, THEN OFF FOR 7 DAYS, Q 28 DAYS
     Route: 048
     Dates: start: 20211011
  2. IBRANCE [Suspect]
     Active Substance: PALBOCICLIB
     Indication: Invasive ductal breast carcinoma
  3. TAMOXIFEN [Concomitant]
     Active Substance: TAMOXIFEN
     Indication: Breast cancer recurrent
     Dosage: UNK
     Dates: start: 20211011, end: 20230419
  4. TAMOXIFEN [Concomitant]
     Active Substance: TAMOXIFEN
     Indication: Invasive ductal breast carcinoma
  5. FASLODEX [Concomitant]
     Active Substance: FULVESTRANT
     Indication: Breast cancer recurrent
     Dosage: UNK
     Dates: start: 20230419
  6. FASLODEX [Concomitant]
     Active Substance: FULVESTRANT
     Indication: Invasive ductal breast carcinoma
  7. XGEVA [Concomitant]
     Active Substance: DENOSUMAB
     Indication: Breast cancer recurrent
     Dosage: UNK
     Dates: start: 20240402, end: 20240430
  8. XGEVA [Concomitant]
     Active Substance: DENOSUMAB
     Indication: Invasive ductal breast carcinoma
  9. ELIQUIS [Concomitant]
     Active Substance: APIXABAN
     Indication: Deep vein thrombosis
     Dosage: TAKE ONE TABLET BY MOUTH TWICE A DAY
     Route: 048

REACTIONS (3)
  - Tooth disorder [Unknown]
  - Tumour marker increased [Unknown]
  - Neoplasm progression [Unknown]
